FAERS Safety Report 4533620-4 (Version None)
Quarter: 2004Q4

REPORT INFORMATION
  Report Type: 
  Country: None (occurrence: None)
  Receive Date: 20041221
  Receipt Date: 20041214
  Transmission Date: 20050328
  Serious: Yes (Other)
  Sender: FDA-Public Use
  Company Number: IT-BRISTOL-MYERS SQUIBB COMPANY-12794343

PATIENT
  Age: 60 Year
  Sex: Female

DRUGS (2)
  1. CISPLATIN [Suspect]
     Indication: LUNG SQUAMOUS CELL CARCINOMA STAGE UNSPECIFIED
     Dosage: DAYS 1-5 EVERY 3-4 WEEKS
     Route: 042
     Dates: start: 19840918, end: 19840923
  2. ETOPOSIDE [Suspect]
     Indication: LUNG SQUAMOUS CELL CARCINOMA STAGE UNSPECIFIED
     Dosage: DAYS 1-5 EVERY 3-4 WEEKS
     Route: 042
     Dates: start: 19840918, end: 19840923

REACTIONS (1)
  - SUPRAVENTRICULAR TACHYCARDIA [None]
